FAERS Safety Report 16879178 (Version 3)
Quarter: 2019Q4

REPORT INFORMATION
  Report Type: Spontaneous
  Country: DE (occurrence: DE)
  Receive Date: 20191003
  Receipt Date: 20191101
  Transmission Date: 20200122
  Serious: Yes (Other)
  Sender: FDA-Public Use
  Company Number: DE-US-PROVELL PHARMACEUTICALS LLC-E2B_90071025

PATIENT
  Sex: Male

DRUGS (2)
  1. EUTHYROX NF [Suspect]
     Active Substance: LEVOTHYROXINE SODIUM
     Dosage: DOSE REDUCED
  2. EUTHYROX NF [Suspect]
     Active Substance: LEVOTHYROXINE SODIUM
     Indication: POST PROCEDURAL HYPOTHYROIDISM

REACTIONS (12)
  - Heart rate increased [Recovered/Resolved]
  - Arthralgia [Recovering/Resolving]
  - Fatigue [Recovering/Resolving]
  - Feeling cold [Unknown]
  - Inappropriate schedule of product administration [Unknown]
  - Head discomfort [Recovered/Resolved]
  - Feeling hot [Recovering/Resolving]
  - Blood thyroid stimulating hormone decreased [Unknown]
  - Body temperature decreased [Unknown]
  - Laryngeal stenosis [Unknown]
  - Hyperhidrosis [Recovering/Resolving]
  - Peripheral coldness [Unknown]
